FAERS Safety Report 12757026 (Version 1)
Quarter: 2016Q3

REPORT INFORMATION
  Report Type: Report from Study
  Country: RU (occurrence: RU)
  Receive Date: 20160918
  Receipt Date: 20160918
  Transmission Date: 20161109
  Serious: Yes (Other)
  Sender: FDA-Public Use
  Company Number: RU-B.I. PHARMACEUTICALS,INC./RIDGEFIELD-2016-BI-59799RZ

PATIENT
  Age: 68 Year
  Sex: Male
  Weight: 110 kg

DRUGS (1)
  1. PRADAXA [Suspect]
     Active Substance: DABIGATRAN ETEXILATE MESYLATE
     Indication: PROPHYLAXIS
     Dosage: 300 MG
     Route: 048
     Dates: start: 20160408, end: 20160907

REACTIONS (4)
  - Brain hypoxia [Not Recovered/Not Resolved]
  - Cerebral haematoma [Not Recovered/Not Resolved]
  - Syncope [Not Recovered/Not Resolved]
  - Fall [Not Recovered/Not Resolved]

NARRATIVE: CASE EVENT DATE: 20160906
